FAERS Safety Report 7025425-X (Version None)
Quarter: 2010Q4

REPORT INFORMATION
  Report Type: 
  Country: None (occurrence: None)
  Receive Date: 20101001
  Receipt Date: 20100927
  Transmission Date: 20110411
  Serious: Yes (Life-Threatening, Hospitalization)
  Sender: FDA-Public Use
  Company Number: GXKR2010GB06988

PATIENT
  Age: 56 Year
  Sex: Male

DRUGS (8)
  1. ATORVASTATIN (NGX) [Suspect]
     Dosage: 20 MG, UNK
     Route: 065
  2. INDAPAMIDE (NGX) [Suspect]
     Dosage: 2.5 MG, UNK
     Route: 065
  3. PERINDOPRIL ERBUMINE [Suspect]
     Dosage: 4 MG, UNK
     Route: 065
  4. RANITIDINE HCL [Suspect]
     Dosage: 150 MG, BID
     Route: 065
  5. EZETIMIBE [Suspect]
     Dosage: 10 MG, UNK
     Route: 048
  6. ACETYLSALICYLIC ACID SRT [Concomitant]
     Dosage: 75 MG, UNK
     Route: 048
  7. GLUCOSAMINE [Concomitant]
     Dosage: 100 MG, UNK
     Route: 048
  8. NITROGLYCERIN [Concomitant]
     Dosage: 2 DF, UNK
     Route: 060

REACTIONS (2)
  - HYPOTENSION [None]
  - STEVENS-JOHNSON SYNDROME [None]
